FAERS Safety Report 6870865-2 (Version None)
Quarter: 2010Q3

REPORT INFORMATION
  Report Type: 
  Country: None (occurrence: None)
  Receive Date: 20100723
  Receipt Date: 20100712
  Transmission Date: 20110219
  Serious: Yes (Hospitalization, Other)
  Sender: FDA-Public Use
  Company Number: PHHY2010US28634

PATIENT
  Age: 44 Year
  Sex: Female
  Weight: 52 kg

DRUGS (9)
  1. NEORAL [Suspect]
     Indication: RENAL TRANSPLANT
     Dosage: 300 MG DAILY
     Route: 048
     Dates: start: 19970106, end: 20100607
  2. RENVELA [Concomitant]
     Indication: BLOOD PHOSPHORUS INCREASED
     Dosage: 2400 MG DAILY
     Route: 048
     Dates: start: 20080416, end: 20100607
  3. COZAAR [Concomitant]
     Indication: HYPERTENSION
     Dosage: 25 MG DAILY
     Route: 048
     Dates: start: 19980414, end: 20100607
  4. PREDNISONE TAB [Concomitant]
     Indication: PROPHYLAXIS AGAINST TRANSPLANT REJECTION
     Dosage: 100 MG DAILY
     Route: 048
     Dates: start: 19970128
  5. CATAPRES-TTS-1 [Concomitant]
     Indication: HYPERTENSION
     Dosage: 1 OTHER WEEKLY
     Dates: start: 20000404
  6. CELLCEPT [Concomitant]
     Indication: PROPHYLAXIS AGAINST TRANSPLANT REJECTION
     Dosage: 2000 MG DAILY
     Route: 048
     Dates: start: 19970107, end: 20081028
  7. EPOGEN [Concomitant]
     Indication: ANAEMIA
     Dosage: 10000 UNITS MONTHLY
     Dates: start: 20070319, end: 20100607
  8. ESTRADIOL [Concomitant]
     Indication: RADICAL HYSTERECTOMY
     Dosage: 0.05 MG PER 24 HOURS DAILY
     Route: 062
     Dates: start: 19960610
  9. ZETIA [Concomitant]
     Indication: BLOOD CHOLESTEROL INCREASED
     Dosage: 10 MG, DAILY
     Route: 048
     Dates: start: 20070516

REACTIONS (2)
  - RENAL TRANSPLANT [None]
  - VOMITING [None]
